FAERS Safety Report 5639573-X (Version None)
Quarter: 2008Q1

REPORT INFORMATION
  Report Type: 
  Country: None (occurrence: None)
  Receive Date: 20080226
  Receipt Date: 20080221
  Transmission Date: 20080703
  Serious: Yes (Other)
  Sender: FDA-Public Use
  Company Number: US-GILEAD-2008-0015392

PATIENT
  Age: 50 Year
  Sex: Male

DRUGS (4)
  1. EMTRIVA [Suspect]
     Indication: HIV INFECTION
  2. VIREAD [Suspect]
     Indication: HIV INFECTION
  3. EFAVIRENZ [Suspect]
     Indication: HIV INFECTION
  4. LAMIVUDINE [Suspect]
     Indication: HIV INFECTION

REACTIONS (4)
  - BLOOD GLUCOSE INCREASED [None]
  - LIPIDS INCREASED [None]
  - LIPOMATOSIS [None]
  - WEIGHT INCREASED [None]
